FAERS Safety Report 5372229-X (Version None)
Quarter: 2007Q2

REPORT INFORMATION
  Report Type: 
  Country: None (occurrence: None)
  Receive Date: 20070627
  Receipt Date: 20070621
  Transmission Date: 20071010
  Serious: Yes (Hospitalization)
  Sender: FDA-Public Use
  Company Number: US-ASTRAZENECA-2007UW14948

PATIENT
  Age: 15 Year
  Sex: Female
  Weight: 40 kg

DRUGS (11)
  1. IRESSA [Suspect]
     Indication: ADENOCARCINOMA
     Dosage: QD X 12 DAYS
     Route: 048
     Dates: start: 20070613, end: 20070619
  2. IRINOTECAN HCL [Suspect]
     Indication: ADENOCARCINOMA
     Dosage: QD X 5 DAYS X2
     Route: 048
     Dates: start: 20070613, end: 20070617
  3. FENTANYL [Concomitant]
     Dates: start: 20070608, end: 20070608
  4. ELITEK [Concomitant]
     Dates: start: 20070613, end: 20070613
  5. METHADONE HCL [Concomitant]
     Route: 048
     Dates: start: 20070614, end: 20070614
  6. METHADONE HCL [Concomitant]
     Route: 048
     Dates: start: 20070616
  7. OMEPRAZOLE [Concomitant]
     Route: 048
     Dates: start: 20070617
  8. SULFAMETHOXAZOLE/TRIMETHROPRIM [Concomitant]
     Route: 048
     Dates: start: 20070617
  9. MEPHYTON [Concomitant]
     Route: 048
     Dates: start: 20070617, end: 20070617
  10. LORAZEPAM [Concomitant]
     Dosage: PRN
     Route: 048
     Dates: start: 20070618
  11. DIPHENHYDRAMINE HCL [Concomitant]
     Route: 042
     Dates: start: 20070618

REACTIONS (6)
  - HAEMATEMESIS [None]
  - HAEMATURIA [None]
  - NAUSEA [None]
  - ORAL INTAKE REDUCED [None]
  - RENAL DISORDER [None]
  - VOMITING [None]
